FAERS Safety Report 8223325-0 (Version None)
Quarter: 2012Q1

REPORT INFORMATION
  Report Type: 
  Country: None (occurrence: None)
  Receive Date: 20120321
  Receipt Date: 20120306
  Transmission Date: 20120608
  Serious: Yes (Other)
  Sender: FDA-Public Use
  Company Number: US-ROCHE-1041607

PATIENT
  Sex: Male
  Weight: 89.5 kg

DRUGS (6)
  1. ADRIAMYCIN PFS [Concomitant]
  2. RITUXAN [Suspect]
     Indication: NON-HODGKIN'S LYMPHOMA
     Route: 042
     Dates: start: 20120104
  3. TREANDA [Concomitant]
  4. RITUXAN [Suspect]
     Indication: B-CELL LYMPHOMA
  5. FLUDARABINE PHOSPHATE [Concomitant]
  6. ALLOPURINOL [Concomitant]

REACTIONS (7)
  - NON-HODGKIN'S LYMPHOMA [None]
  - LYMPHOMA [None]
  - HAEMATURIA [None]
  - URETERIC OBSTRUCTION [None]
  - PNEUMONIA [None]
  - BLOOD URIC ACID INCREASED [None]
  - DYSPNOEA [None]
